FAERS Safety Report 19109365 (Version 1)
Quarter: 2021Q2

REPORT INFORMATION
  Report Type: Spontaneous
  Country: US (occurrence: US)
  Receive Date: 20210409
  Receipt Date: 20210409
  Transmission Date: 20210717
  Serious: No
  Sender: FDA-Public Use
  Company Number: US-ELI_LILLY_AND_COMPANY-US202103007727

PATIENT
  Age: 70 Year
  Sex: Female

DRUGS (2)
  1. LEVEMIR [Concomitant]
     Active Substance: INSULIN DETEMIR
     Indication: TYPE 2 DIABETES MELLITUS
     Dosage: 37 U, UNKNOWN
  2. HUMALOG [Suspect]
     Active Substance: INSULIN LISPRO
     Indication: TYPE 2 DIABETES MELLITUS
     Dosage: 10 U, PRN
     Route: 058

REACTIONS (8)
  - Gait disturbance [Unknown]
  - Pain [Unknown]
  - Blood glucose decreased [Recovered/Resolved]
  - Incorrect dose administered [Recovered/Resolved]
  - Hypoaesthesia [Unknown]
  - Fall [Unknown]
  - Blood glucose increased [Recovering/Resolving]
  - Neuropathy peripheral [Recovering/Resolving]

NARRATIVE: CASE EVENT DATE: 202103
